FAERS Safety Report 17591314 (Version 6)
Quarter: 2021Q2

REPORT INFORMATION
  Report Type: Spontaneous
  Country: IN (occurrence: IN)
  Receive Date: 20200327
  Receipt Date: 20210526
  Transmission Date: 20210716
  Serious: Yes (Other)
  Sender: FDA-Public Use
  Company Number: IN-PFIZER INC-2017393435

PATIENT
  Age: 57 Year
  Sex: Male
  Weight: 68 kg

DRUGS (9)
  1. OLMETRACK [Concomitant]
     Indication: HYPERTENSION
     Dosage: 12.5 MG, 1X/DAY
     Dates: start: 2006
  2. AZTOR [Concomitant]
     Indication: BLOOD CHOLESTEROL ABNORMAL
     Dosage: 10 MG, 1X/DAY
     Dates: start: 2006
  3. SUTENT [Suspect]
     Active Substance: SUNITINIB MALATE
     Indication: METASTATIC RENAL CELL CARCINOMA
     Dosage: 50 MG, 1X/DAY (2 WEEKS ON AND 1 WEEK OFF)
     Route: 048
     Dates: start: 20170130, end: 20180215
  4. SUTENT [Suspect]
     Active Substance: SUNITINIB MALATE
     Dosage: 50 MG CYCLIC (ONCE A DAY 2 WEEKS ON AND 1 WEEK OFF)
     Dates: start: 20200215, end: 2020
  5. SUTENT [Suspect]
     Active Substance: SUNITINIB MALATE
     Dosage: 50 MG CYCLIC (ONCE A DAY, 2 WEEKS ON AND 1 WEEK OFF)
     Dates: start: 20200307
  6. SUTENT [Suspect]
     Active Substance: SUNITINIB MALATE
     Dosage: 12.5 MG, 1X/DAY
     Route: 048
  7. SUTENT [Suspect]
     Active Substance: SUNITINIB MALATE
     Dosage: UNK
     Dates: start: 20170201, end: 201912
  8. SUTENT [Suspect]
     Active Substance: SUNITINIB MALATE
     Dosage: 37.5 MG, CYCLIC (2 WEEK ON AND 1 WEEK OFF)
     Route: 048
  9. SUTENT [Suspect]
     Active Substance: SUNITINIB MALATE
     Dosage: 50 MG CYCLIC (ONCE A DAY 2 WEEKS ON AND 1 WEEK OFF)
     Dates: start: 20200215, end: 2020

REACTIONS (7)
  - Hyperkalaemia [Unknown]
  - Yellow skin [Unknown]
  - Renal impairment [Unknown]
  - Neoplasm progression [Unknown]
  - Blood thyroid stimulating hormone decreased [Unknown]
  - Palmar-plantar erythrodysaesthesia syndrome [Unknown]
  - Cough [Unknown]

NARRATIVE: CASE EVENT DATE: 2017
